FAERS Safety Report 4341743-8 (Version None)
Quarter: 2004Q2

REPORT INFORMATION
  Report Type: 
  Country: None (occurrence: None)
  Receive Date: 20040420
  Receipt Date: 20040331
  Transmission Date: 20050107
  Serious: Yes (Death, Hospitalization)
  Sender: FDA-Public Use
  Company Number: LB-MERCK-0403USA02633

PATIENT
  Age: 7 Month
  Sex: Female
  Weight: 8 kg

DRUGS (2)
  1. ANTIMICROBIAL (UNSPECIFIED) [Concomitant]
     Route: 065
  2. SINGULAIR [Suspect]
     Indication: WHEEZING
     Route: 048
     Dates: start: 20040215, end: 20040302

REACTIONS (18)
  - BRADYCARDIA [None]
  - CARDIOMEGALY [None]
  - CYANOSIS [None]
  - HAEMATOCRIT DECREASED [None]
  - HAEMOGLOBIN DECREASED [None]
  - HEPATOMEGALY [None]
  - LYMPHOCYTE PERCENTAGE INCREASED [None]
  - MEAN CELL VOLUME INCREASED [None]
  - MEDICATION ERROR [None]
  - MONOCYTE PERCENTAGE DECREASED [None]
  - NEUTROPHIL PERCENTAGE INCREASED [None]
  - PLATELET COUNT DECREASED [None]
  - RED BLOOD CELL COUNT DECREASED [None]
  - RESPIRATORY DISTRESS [None]
  - RESPIRATORY FAILURE [None]
  - SEPTIC SHOCK [None]
  - TACHYPNOEA [None]
  - WHITE BLOOD CELL COUNT INCREASED [None]
